FAERS Safety Report 18051288 (Version 1)
Quarter: 2020Q3

REPORT INFORMATION
  Report Type: Spontaneous
  Country: US (occurrence: US)
  Receive Date: 20200721
  Receipt Date: 20200721
  Transmission Date: 20201103
  Serious: Yes (Hospitalization, Other)
  Sender: FDA-Public Use
  Company Number: US-PURDUE-USA-2020-0158064

PATIENT
  Sex: Male

DRUGS (2)
  1. OXYCONTIN [Suspect]
     Active Substance: OXYCODONE HYDROCHLORIDE
     Indication: PAIN
     Dosage: UNK
     Route: 048
     Dates: start: 2003
  2. HYDROCODONE BITARTRATE AND ACETAMINOPHEN [Suspect]
     Active Substance: ACETAMINOPHEN\HYDROCODONE BITARTRATE
     Indication: PAIN
     Dosage: UNK
     Route: 048
     Dates: start: 2003

REACTIONS (11)
  - Foot operation [Unknown]
  - Hip fracture [Unknown]
  - Arthralgia [Unknown]
  - Hip surgery [Unknown]
  - Ankle operation [Unknown]
  - Joint dislocation [Unknown]
  - Dependence [Unknown]
  - Rheumatoid arthritis [Unknown]
  - Nocardiosis [Unknown]
  - Accident at work [Unknown]
  - Limb asymmetry [Unknown]

NARRATIVE: CASE EVENT DATE: 201404
